FAERS Safety Report 16647939 (Version 1)
Quarter: 2019Q3

REPORT INFORMATION
  Report Type: Spontaneous
  Country: US (occurrence: US)
  Receive Date: 20190730
  Receipt Date: 20190730
  Transmission Date: 20191004
  Serious: No
  Sender: FDA-Public Use
  Company Number: US-INCYTE CORPORATION-2019IN007570

PATIENT

DRUGS (1)
  1. JAKAFI [Suspect]
     Active Substance: RUXOLITINIB
     Indication: STEM CELL TRANSPLANT
     Dosage: 5 MILLIGRAM, BID
     Route: 048
     Dates: start: 20190710

REACTIONS (3)
  - Nausea [Unknown]
  - Vomiting [Unknown]
  - Off label use [Unknown]
